FAERS Safety Report 5985902-7 (Version None)
Quarter: 2008Q4

REPORT INFORMATION
  Report Type: 
  Country: None (occurrence: None)
  Receive Date: 20081203
  Receipt Date: 20081203
  Transmission Date: 20090506
  Serious: No
  Sender: FDA-Public Use
  Company Number: None

PATIENT
  Age: 55 Year
  Sex: Female
  Weight: 68.0396 kg

DRUGS (1)
  1. ACTIVELLA [Suspect]
     Indication: HORMONE REPLACEMENT THERAPY
     Dosage: 1 TABLET BY MOUTH DAILY
     Route: 048
     Dates: end: 20080301

REACTIONS (3)
  - CONDITION AGGRAVATED [None]
  - HOT FLUSH [None]
  - PRODUCT QUALITY ISSUE [None]
